FAERS Safety Report 6571413-7 (Version None)
Quarter: 2010Q1

REPORT INFORMATION
  Report Type: 
  Country: None (occurrence: None)
  Receive Date: 20100205
  Receipt Date: 20100127
  Transmission Date: 20100710
  Serious: Yes (Other)
  Sender: FDA-Public Use
  Company Number: US-PFIZER INC-2010013011

PATIENT
  Sex: Male

DRUGS (4)
  1. LYRICA [Suspect]
     Indication: NEUROPATHY PERIPHERAL
     Dosage: UNK
     Dates: start: 20080101
  2. NEURONTIN [Suspect]
     Indication: NEUROPATHY PERIPHERAL
     Dosage: UNK
     Dates: start: 20100115, end: 20100116
  3. NEURONTIN [Suspect]
     Dosage: UNK, TWICE DAILY
     Dates: start: 20100116, end: 20100117
  4. NEURONTIN [Suspect]
     Dosage: UNK, THREE TIMES DAILY
     Dates: start: 20100117, end: 20100122

REACTIONS (2)
  - MUSCLE SPASMS [None]
  - OEDEMA [None]
